FAERS Safety Report 7379552-8 (Version None)
Quarter: 2011Q1

REPORT INFORMATION
  Report Type: 
  Country: None (occurrence: None)
  Receive Date: 20110329
  Receipt Date: 20110321
  Transmission Date: 20110831
  Serious: Yes (Hospitalization)
  Sender: FDA-Public Use
  Company Number: FR-BIOGENIDEC-2011BI010688

PATIENT
  Age: 36 Year
  Sex: Female

DRUGS (10)
  1. GABAPENTIN [Concomitant]
     Indication: PAIN
  2. SULFARLEM [Concomitant]
     Indication: DRY MOUTH
  3. ZOMIG [Concomitant]
     Indication: HEADACHE
  4. MANTADIX [Concomitant]
     Indication: ASTHENIA
  5. VASTAREL [Concomitant]
     Indication: DIZZINESS
  6. TYSABRI [Suspect]
     Indication: MULTIPLE SCLEROSIS
     Route: 042
     Dates: start: 20080222, end: 20101223
  7. RIVOTRIL [Concomitant]
     Indication: PAIN
  8. LEXOMIL [Concomitant]
     Indication: ANXIETY
  9. EFFEXOR [Concomitant]
     Indication: ANXIETY
  10. BACLOFEN [Concomitant]
     Indication: MUSCLE SPASTICITY

REACTIONS (1)
  - MALIGNANT MELANOMA [None]
